FAERS Safety Report 6050207-5 (Version None)
Quarter: 2009Q1

REPORT INFORMATION
  Report Type: 
  Country: None (occurrence: None)
  Receive Date: 20090126
  Receipt Date: 20090112
  Transmission Date: 20090719
  Serious: Yes (Death, Hospitalization, Other)
  Sender: FDA-Public Use
  Company Number: GB-JNJFOC-20081001698

PATIENT
  Sex: Male
  Weight: 116 kg

DRUGS (5)
  1. REMICADE [Suspect]
     Indication: WEGENER'S GRANULOMATOSIS
     Route: 042
  2. REMICADE [Suspect]
     Indication: VASCULITIS
     Route: 042
  3. METHOTREXATE [Concomitant]
     Route: 048
  4. STEROIDS [Concomitant]
  5. PREDNISOLONE [Concomitant]
     Route: 048

REACTIONS (10)
  - CELLULITIS [None]
  - DEAFNESS [None]
  - DEEP VEIN THROMBOSIS [None]
  - DIARRHOEA [None]
  - MYOCARDIAL INFARCTION [None]
  - PNEUMONIA [None]
  - RENAL FAILURE ACUTE [None]
  - SERUM SICKNESS [None]
  - SINUSITIS [None]
  - VISION BLURRED [None]
